FAERS Safety Report 6451089-X (Version None)
Quarter: 2009Q4

REPORT INFORMATION
  Report Type: 
  Country: None (occurrence: None)
  Receive Date: 20091123
  Receipt Date: 20091111
  Transmission Date: 20100525
  Serious: Yes (Hospitalization)
  Sender: FDA-Public Use
  Company Number: GB-PFIZER INC-2009296569

PATIENT

DRUGS (1)
  1. SUTENT [Suspect]
     Dosage: UNK
     Dates: start: 20091106

REACTIONS (1)
  - CONVULSION [None]
